FAERS Safety Report 18020233 (Version 1)
Quarter: 2020Q3

REPORT INFORMATION
  Report Type: Spontaneous
  Country: US (occurrence: US)
  Receive Date: 20200714
  Receipt Date: 20200714
  Transmission Date: 20201103
  Serious: Yes (Disabling)
  Sender: FDA-Public Use
  Company Number: None

PATIENT
  Age: 34 Year
  Sex: Female
  Weight: 74.25 kg

DRUGS (6)
  1. OXICODONE [Concomitant]
  2. TRAMADOL. [Concomitant]
     Active Substance: TRAMADOL
  3. CORTISONE STEROID SHOT. [Suspect]
     Active Substance: CORTISONE
     Indication: ARTHRALGIA
     Dosage: ?          OTHER FREQUENCY:4 SHOTS TOTAL;?
     Route: 030
     Dates: start: 20161009, end: 20170113
  4. CELEXA [Concomitant]
     Active Substance: CITALOPRAM HYDROBROMIDE
  5. VITAMIN D [Concomitant]
     Active Substance: VITAMIN D NOS
  6. IRON [Concomitant]
     Active Substance: IRON

REACTIONS (4)
  - Drug hypersensitivity [None]
  - Injection site pain [None]
  - Injection site rash [None]
  - Pruritus [None]

NARRATIVE: CASE EVENT DATE: 20171010
